FAERS Safety Report 4445584-2 (Version None)
Quarter: 2004Q3

REPORT INFORMATION
  Report Type: 
  Country: None (occurrence: None)
  Receive Date: 20040910
  Receipt Date: 20040831
  Transmission Date: 20050211
  Serious: Yes (Hospitalization)
  Sender: FDA-Public Use
  Company Number: FR-BRISTOL-MYERS SQUIBB COMPANY-12691408

PATIENT
  Age: 64 Year
  Sex: Male

DRUGS (12)
  1. AMIKLIN POWDER [Suspect]
     Indication: INFECTION
     Dates: start: 20040705, end: 20040707
  2. BACTRIM [Suspect]
     Indication: INFECTION
     Dosage: ^800 MG^ TWICE DAILY, WITHHELD BETWEEN 03-JUL AND 06-JUL-2004
     Route: 048
     Dates: start: 20040627, end: 20040709
  3. MOPRAL [Suspect]
     Indication: INFECTION
     Dosage: WITH HELD FROM 02-JUL TO 04-JUL-2004
     Route: 048
     Dates: start: 20040617, end: 20040709
  4. TARGOCID [Suspect]
     Indication: INFECTION
     Dosage: WITH HELD FROM 03-JUL-2004 UNTIL 07-JUL-2004
     Route: 042
     Dates: start: 20040618, end: 20040709
  5. TRIFLUCAN [Suspect]
     Indication: URINARY TRACT INFECTION FUNGAL
     Route: 048
     Dates: start: 20040704, end: 20040709
  6. VANCOMYCIN [Suspect]
     Indication: INFECTION
     Dosage: WITH HELD FROM 02-JUL UNTIL 04-JUL-2004
     Route: 048
     Dates: start: 20040618, end: 20040707
  7. LOVENOX [Concomitant]
     Dates: start: 20040618
  8. BISOPROLOL FUMARATE [Concomitant]
     Dates: start: 20040618
  9. MOTILIUM [Concomitant]
     Dates: start: 20040618
  10. STILNOX [Concomitant]
     Dates: start: 20040618
  11. TERCIAN [Concomitant]
     Dates: start: 20040618, end: 20040701
  12. GENTAMYCIN SULFATE [Concomitant]
     Dates: start: 20040628, end: 20040703

REACTIONS (1)
  - AGRANULOCYTOSIS [None]
